FAERS Safety Report 17365817 (Version 1)
Quarter: 2020Q1

REPORT INFORMATION
  Report Type: Spontaneous
  Country: GB (occurrence: GB)
  Receive Date: 20200204
  Receipt Date: 20200204
  Transmission Date: 20200409
  Serious: Yes (Other)
  Sender: FDA-Public Use
  Company Number: GB-MYLANLABS-2020M1011667

PATIENT
  Age: 30 Year
  Sex: Female

DRUGS (5)
  1. CIPROFLOXACIN. [Suspect]
     Active Substance: CIPROFLOXACIN
     Indication: ABDOMINAL DISCOMFORT
     Dosage: 1000 MILLIGRAM, QD
     Route: 048
     Dates: start: 20070626, end: 20070704
  2. DOXYCYCLINE. [Concomitant]
     Active Substance: DOXYCYCLINE
  3. PROGESTERONE. [Concomitant]
     Active Substance: PROGESTERONE
  4. LOPERAMIDE [Concomitant]
     Active Substance: LOPERAMIDE
  5. TINIDAZOLE. [Concomitant]
     Active Substance: TINIDAZOLE

REACTIONS (10)
  - Pyrexia [Unknown]
  - Neuropathy peripheral [Unknown]
  - Thinking abnormal [Recovered/Resolved]
  - Paraesthesia [Recovered/Resolved with Sequelae]
  - Hypoaesthesia [Unknown]
  - Anxiety [Recovered/Resolved]
  - Haematochezia [Recovered/Resolved]
  - Insomnia [Recovered/Resolved]
  - Paranoia [Recovered/Resolved]
  - Diarrhoea [Unknown]

NARRATIVE: CASE EVENT DATE: 20070628
